FAERS Safety Report 8122090-5 (Version None)
Quarter: 2012Q1

REPORT INFORMATION
  Report Type: 
  Country: None (occurrence: None)
  Receive Date: 20120208
  Receipt Date: 20120127
  Transmission Date: 20120608
  Serious: Yes (Hospitalization, Other)
  Sender: FDA-Public Use
  Company Number: JP-JNJFOC-20111200604

PATIENT
  Age: 82 Year
  Sex: Female
  Weight: 35 kg

DRUGS (17)
  1. PREDNISOLONE [Concomitant]
     Route: 048
  2. REMICADE [Suspect]
     Route: 042
     Dates: start: 20050826
  3. STEROIDS NOS [Suspect]
     Indication: PRODUCT USED FOR UNKNOWN INDICATION
     Route: 065
  4. ETODOLAC [Concomitant]
     Route: 048
  5. PROTECADIN [Concomitant]
     Route: 048
  6. SELBEX [Concomitant]
     Route: 048
  7. FOLIC ACID [Concomitant]
     Route: 048
  8. REMICADE [Suspect]
     Indication: RHEUMATOID ARTHRITIS
     Route: 042
     Dates: start: 20041005
  9. REMICADE [Suspect]
     Route: 042
     Dates: start: 20111013
  10. METHOTREXATE [Suspect]
     Indication: RHEUMATOID ARTHRITIS
     Dosage: 4MG X 1  2MG X 2
     Route: 048
     Dates: start: 20070213, end: 20111122
  11. FLAVITAN [Concomitant]
     Route: 048
  12. REMICADE [Suspect]
     Route: 042
  13. RHEUMATREX [Suspect]
     Indication: PRODUCT USED FOR UNKNOWN INDICATION
     Route: 048
     Dates: start: 20030922, end: 20070212
  14. REMICADE [Suspect]
     Route: 042
     Dates: start: 20050701
  15. NSAID [Suspect]
     Indication: PRODUCT USED FOR UNKNOWN INDICATION
     Route: 065
  16. FORTEO [Concomitant]
     Route: 058
  17. KENALOG [Concomitant]
     Route: 065

REACTIONS (6)
  - NECROTISING COLITIS [None]
  - INTESTINAL OBSTRUCTION [None]
  - BONE MARROW FAILURE [None]
  - GASTROINTESTINAL ULCER [None]
  - STOMATITIS [None]
  - DISSEMINATED INTRAVASCULAR COAGULATION [None]
